FAERS Safety Report 6145032-0 (Version None)
Quarter: 2009Q2

REPORT INFORMATION
  Report Type: 
  Country: None (occurrence: None)
  Receive Date: 20090401
  Receipt Date: 20090401
  Transmission Date: 20091009
  Serious: Yes (Other)
  Sender: FDA-Public Use
  Company Number: None

PATIENT
  Age: 45 Year
  Sex: Female
  Weight: 79.3795 kg

DRUGS (2)
  1. FLEETS PHOPHOSODA 1/2 OZ IN 8OZ GINGERALE DOSE X6 [Suspect]
     Indication: BOWEL PREPARATION
     Dosage: 1/2 OZ IN 8 OZ GINGERALE DOSE 6 TIMES
     Dates: start: 20020523, end: 20020523
  2. FLEETS PHOPHOSODA 1/2 OZ IN 8OZ GINGERALE DOSE X6 [Suspect]
     Indication: COLONOSCOPY
     Dosage: 1/2 OZ IN 8 OZ GINGERALE DOSE 6 TIMES
     Dates: start: 20020523, end: 20020523

REACTIONS (1)
  - RENAL FAILURE CHRONIC [None]
